FAERS Safety Report 14333839 (Version 1)
Quarter: 2017Q4

REPORT INFORMATION
  Report Type: Spontaneous
  Country: US (occurrence: US)
  Receive Date: 20171227
  Receipt Date: 20171227
  Transmission Date: 20180321
  Serious: No
  Sender: FDA-Public Use
  Company Number: None

PATIENT
  Age: 70 Year
  Sex: Female

DRUGS (1)
  1. IBRANCE [Suspect]
     Active Substance: PALBOCICLIB
     Indication: BREAST CANCER FEMALE
     Dosage: 125MG DQ FOR 21 DAYS, PO
     Route: 048
     Dates: start: 20171107

REACTIONS (5)
  - Loss of personal independence in daily activities [None]
  - Hypophagia [None]
  - Lethargy [None]
  - Decreased appetite [None]
  - Stomatitis [None]

NARRATIVE: CASE EVENT DATE: 20171220
